FAERS Safety Report 4879583-3 (Version None)
Quarter: 2006Q1

REPORT INFORMATION
  Report Type: 
  Country: None (occurrence: None)
  Receive Date: 20060111
  Receipt Date: 20051229
  Transmission Date: 20060701
  Serious: Yes (Death)
  Sender: FDA-Public Use
  Company Number: DSA_27602_2006

PATIENT
  Age: 22 Year
  Sex: Female

DRUGS (3)
  1. TEMESTA [Suspect]
     Dosage: 100 MG ONCE PO
     Route: 048
     Dates: start: 20051226, end: 20051226
  2. MEPRONIZINE [Suspect]
     Dosage: 4 TAB ONCE PO
     Route: 048
     Dates: start: 20051226, end: 20051226
  3. ALCOHOL [Suspect]
     Dosage: DF PO
     Route: 048
     Dates: end: 20051226

REACTIONS (2)
  - ALCOHOL USE [None]
  - MULTIPLE DRUG OVERDOSE [None]
